FAERS Safety Report 16526760 (Version 1)
Quarter: 2019Q3

REPORT INFORMATION
  Report Type: Spontaneous
  Country: US (occurrence: US)
  Receive Date: 20190703
  Receipt Date: 20190703
  Transmission Date: 20191004
  Serious: Yes (Other)
  Sender: FDA-Public Use
  Company Number: US-NOVOPROD-670198

PATIENT
  Age: 65 Year
  Sex: Female

DRUGS (2)
  1. NOVOLOG [Concomitant]
     Active Substance: INSULIN ASPART
     Indication: TYPE 2 DIABETES MELLITUS
     Dosage: 10 IU, TID (10 UNITS WITH MEAL THREE TIMES PER DAY)
     Route: 058
     Dates: start: 2008
  2. LEVEMIR [Suspect]
     Active Substance: INSULIN DETEMIR
     Indication: TYPE 2 DIABETES MELLITUS
     Dosage: 22 IU, BID
     Route: 058
     Dates: start: 2018

REACTIONS (6)
  - Dehydration [Recovered/Resolved]
  - Dehydration [Recovered/Resolved]
  - Blood glucose increased [Recovered/Resolved]
  - Dizziness [Not Recovered/Not Resolved]
  - Blood glucose increased [Recovered/Resolved]
  - Rash [Not Recovered/Not Resolved]

NARRATIVE: CASE EVENT DATE: 2018
